FAERS Safety Report 5509337-6 (Version None)
Quarter: 2007Q4

REPORT INFORMATION
  Report Type: 
  Country: None (occurrence: None)
  Receive Date: 20071106
  Receipt Date: 20071028
  Transmission Date: 20080405
  Serious: Yes (Other)
  Sender: FDA-Public Use
  Company Number: CHPA2007US11293

PATIENT
  Age: 50 Year
  Sex: Female

DRUGS (1)
  1. MAALOX ANTIACID/ANTIGAS MAX STR MULTI SYMTOM (NCH)(MAGNESIUM HYDROXIDE [Suspect]
     Indication: STOMACH DISCOMFORT
     Dosage: 2 TSP, ONCE/SINGLE, ORAL
     Route: 048
     Dates: start: 20071025

REACTIONS (1)
  - CONVULSION [None]
